FAERS Safety Report 21285664 (Version 2)
Quarter: 2022Q3

REPORT INFORMATION
  Report Type: Spontaneous
  Country: US (occurrence: US)
  Receive Date: 20220902
  Receipt Date: 20220907
  Transmission Date: 20221027
  Serious: No
  Sender: FDA-Public Use
  Company Number: US-AVET LIFESCIENCES LTD-2022-AVET-000155

PATIENT

DRUGS (1)
  1. PAROMOMYCIN SULFATE [Suspect]
     Active Substance: PAROMOMYCIN SULFATE
     Indication: Amoeboma
     Dosage: UNK
     Dates: start: 20220812

REACTIONS (1)
  - Dizziness [Unknown]

NARRATIVE: CASE EVENT DATE: 20220812
